FAERS Safety Report 10150480 (Version 1)
Quarter: 2014Q2

REPORT INFORMATION
  Report Type: Spontaneous
  Country: DE (occurrence: DE)
  Receive Date: 20140502
  Receipt Date: 20140502
  Transmission Date: 20141212
  Serious: Yes (Life-Threatening)
  Sender: FDA-Public Use
  Company Number: DE-TEVA-478383GER

PATIENT
  Sex: Male

DRUGS (2)
  1. CEPHALEXIN-RATIOPHARM 1000 MG FILMTABLETTEN [Suspect]
     Indication: PROCEDURAL SITE REACTION
     Dosage: 3000 MILLIGRAM DAILY;
     Route: 048
     Dates: start: 20140417, end: 20140421
  2. OMEPRAZOL [Interacting]
     Indication: EAGLE BARRETT SYNDROME

REACTIONS (3)
  - Pseudomembranous colitis [Recovered/Resolved]
  - Drug interaction [Recovered/Resolved]
  - Diarrhoea [Recovered/Resolved]
